FAERS Safety Report 4373700-X (Version None)
Quarter: 2004Q1

REPORT INFORMATION
  Report Type: 
  Country: None (occurrence: None)
  Receive Date: 20040305
  Receipt Date: 20040203
  Transmission Date: 20041129
  Serious: Yes (Other)
  Sender: FDA-Public Use
  Company Number: 2004UW00248

PATIENT
  Age: 96 Year
  Sex: Female
  Weight: 45.3597 kg

DRUGS (3)
  1. CRESTOR [Suspect]
     Dosage: 5 MG DAILY PO
     Route: 048
     Dates: start: 20030103
  2. ACTINAL [Concomitant]
  3. ASPIRIN [Concomitant]

REACTIONS (2)
  - DYSPEPSIA [None]
  - EYE IRRITATION [None]
